FAERS Safety Report 11223547 (Version 1)
Quarter: 2015Q2

REPORT INFORMATION
  Report Type: Spontaneous
  Country: US (occurrence: US)
  Receive Date: 20150628
  Receipt Date: 20150628
  Transmission Date: 20150821
  Serious: No
  Sender: FDA-Public Use
  Company Number: US-009507513-1506USA011768

PATIENT
  Age: 33 Year
  Sex: Female
  Weight: 104 kg

DRUGS (3)
  1. RELPAX [Concomitant]
     Active Substance: ELETRIPTAN HYDROBROMIDE
     Dosage: 40 MG, AS NEEDED UPON ONSET OF A MIGRAINE
     Route: 048
     Dates: start: 201312, end: 201504
  2. TOPIRAMATE. [Concomitant]
     Active Substance: TOPIRAMATE
     Indication: MIGRAINE PROPHYLAXIS
     Dosage: 50 MG, QD
     Route: 048
     Dates: start: 2006
  3. MAXALT [Suspect]
     Active Substance: RIZATRIPTAN BENZOATE
     Indication: MIGRAINE
     Dosage: 1 PILL UPON ONSET OF MIGRAINE, MAY REPEAT DOSE WITHIN AN HOUR IF NOT EFFECTIVE
     Route: 048
     Dates: start: 2011, end: 201312

REACTIONS (3)
  - Product quality issue [Unknown]
  - Nasopharyngitis [Not Recovered/Not Resolved]
  - Drug ineffective [Unknown]

NARRATIVE: CASE EVENT DATE: 2013
